FAERS Safety Report 11337189 (Version 1)
Quarter: 2015Q3

REPORT INFORMATION
  Report Type: Report from Study
  Country: GB (occurrence: GB)
  Receive Date: 20150804
  Receipt Date: 20150804
  Transmission Date: 20151125
  Serious: Yes (Death, Other)
  Sender: FDA-Public Use
  Company Number: GB-ABBVIE-15P-167-1438677-00

PATIENT
  Age: 60 Year
  Sex: Male

DRUGS (9)
  1. TENOFOVIR [Concomitant]
     Active Substance: TENOFOVIR
     Indication: HIV INFECTION
     Route: 048
     Dates: start: 20101125, end: 20150515
  2. ATAZANAVIR [Concomitant]
     Active Substance: ATAZANAVIR
     Indication: HIV INFECTION
     Route: 048
     Dates: start: 20101224, end: 20150515
  3. MIKAMYCIN C [Concomitant]
     Indication: ANAL CANCER
     Dosage: IN WEEK 1 AND WEEK 5
  4. RITONAVIR. [Suspect]
     Active Substance: RITONAVIR
     Indication: HIV INFECTION
     Route: 048
     Dates: start: 20101224, end: 20150515
  5. BENDROFLUMETHIAZIDE [Concomitant]
     Active Substance: BENDROFLUMETHIAZIDE
     Indication: HYPERTENSION
     Route: 048
     Dates: start: 2012, end: 20150515
  6. 5-FLUOROURACIL [Suspect]
     Active Substance: FLUOROURACIL
     Indication: ANAL CANCER
     Route: 065
     Dates: start: 201504, end: 20150515
  7. LITHIUM. [Concomitant]
     Active Substance: LITHIUM
     Indication: BIPOLAR DISORDER
     Route: 048
     Dates: start: 2000, end: 20150515
  8. LIPITOR [Concomitant]
     Active Substance: ATORVASTATIN CALCIUM
     Indication: BLOOD CHOLESTEROL INCREASED
     Route: 048
     Dates: start: 2012, end: 20150515
  9. LISINOPRIL. [Concomitant]
     Active Substance: LISINOPRIL
     Indication: HYPERTENSION
     Route: 048
     Dates: end: 20150515

REACTIONS (6)
  - Myocardial ischaemia [Fatal]
  - Cardiac hypertrophy [Fatal]
  - Deep vein thrombosis [Unknown]
  - Arteriosclerosis coronary artery [Fatal]
  - Hypertension [Fatal]
  - Anal squamous cell carcinoma [Unknown]

NARRATIVE: CASE EVENT DATE: 2011
